FAERS Safety Report 20809485 (Version 1)
Quarter: 2022Q2

REPORT INFORMATION
  Report Type: Spontaneous
  Country: US (occurrence: None)
  Receive Date: 20220510
  Receipt Date: 20220510
  Transmission Date: 20220721
  Serious: Yes (Hospitalization)
  Sender: FDA-Public Use
  Company Number: None

PATIENT
  Sex: Male
  Weight: 74.4 kg

DRUGS (13)
  1. LENALIDOMIDE [Suspect]
     Active Substance: LENALIDOMIDE
  2. ALBBUTEROL [Concomitant]
  3. CALCIUM [Concomitant]
  4. EPINEPHRINE [Concomitant]
  5. LIPITOR [Concomitant]
     Active Substance: ATORVASTATIN CALCIUM
  6. MULTIVITAMIN [Concomitant]
  7. NIZORAL CREAM [Concomitant]
  8. NORVASC [Concomitant]
  9. PEPCID [Concomitant]
  10. VITAMIN D [Concomitant]
  11. ASPIRIN [Concomitant]
     Active Substance: ASPIRIN
  12. IMITREX [Concomitant]
  13. ONDANSETRON [Concomitant]

REACTIONS (4)
  - Nausea [None]
  - Vomiting [None]
  - Headache [None]
  - Haemorrhage intracranial [None]

NARRATIVE: CASE EVENT DATE: 20220503
